FAERS Safety Report 9077078 (Version 2)
Quarter: 2013Q1

REPORT INFORMATION
  Report Type: Spontaneous
  Country: FR (occurrence: FR)
  Receive Date: 20130130
  Receipt Date: 20130311
  Transmission Date: 20140127
  Serious: Yes (Other)
  Sender: FDA-Public Use
  Company Number: FR-AMGEN-FRASP2013006296

PATIENT
  Age: 29 Year
  Sex: Female

DRUGS (5)
  1. ENBREL [Suspect]
     Indication: PSORIASIS
     Dosage: 1 DF, WEEKLY
     Route: 058
     Dates: start: 201107
  2. ENBREL [Suspect]
     Indication: PSORIATIC ARTHROPATHY
     Dosage: UNK
  3. ENBREL [Suspect]
     Dosage: UNK
  4. METHOTREXATE [Concomitant]
     Indication: SPONDYLITIS
     Dosage: 15 MG, WEEKLY
     Route: 048
     Dates: start: 20090515
  5. SPECIAFOLDINE [Concomitant]
     Dosage: UNK
     Dates: start: 20090515

REACTIONS (3)
  - Lichenoid keratosis [Not Recovered/Not Resolved]
  - Chillblains [Not Recovered/Not Resolved]
  - Cutaneous lupus erythematosus [Not Recovered/Not Resolved]
